FAERS Safety Report 14290962 (Version 1)
Quarter: 2017Q4

REPORT INFORMATION
  Report Type: Spontaneous
  Country: US (occurrence: US)
  Receive Date: 20171215
  Receipt Date: 20171215
  Transmission Date: 20180321
  Serious: Yes (Other)
  Sender: FDA-Public Use
  Company Number: US-JNJFOC-20171213224

PATIENT
  Age: 49 Year
  Sex: Female
  Weight: 104.33 kg

DRUGS (2)
  1. LEVAQUIN [Suspect]
     Active Substance: LEVOFLOXACIN
     Indication: BRONCHITIS
     Route: 048
     Dates: start: 20170715, end: 20170719
  2. XARELTO [Concomitant]
     Active Substance: RIVAROXABAN
     Route: 048

REACTIONS (13)
  - Panic attack [Recovered/Resolved]
  - Swelling [Not Recovered/Not Resolved]
  - Rash macular [Unknown]
  - Gait disturbance [Not Recovered/Not Resolved]
  - Pain [Unknown]
  - Chest pain [Recovered/Resolved]
  - Thrombosis [Not Recovered/Not Resolved]
  - Anxiety [Not Recovered/Not Resolved]
  - Agitation [Not Recovered/Not Resolved]
  - Tendon rupture [Not Recovered/Not Resolved]
  - Dyspnoea [Unknown]
  - Skin fissures [Recovered/Resolved]
  - Insomnia [Not Recovered/Not Resolved]

NARRATIVE: CASE EVENT DATE: 201707
